FAERS Safety Report 4511983-3 (Version None)
Quarter: 2004Q4

REPORT INFORMATION
  Report Type: 
  Country: None (occurrence: None)
  Receive Date: 20041129
  Receipt Date: 20040202
  Transmission Date: 20050328
  Serious: No
  Sender: FDA-Public Use
  Company Number: US-BRISTOL-MYERS SQUIBB COMPANY-12494142

PATIENT
  Age: 46 Year
  Sex: Male
  Weight: 65 kg

DRUGS (4)
  1. SUSTIVA [Suspect]
     Indication: HIV INFECTION
     Route: 048
     Dates: start: 20040120
  2. RETROVIR [Concomitant]
  3. VIREAD [Concomitant]
  4. NEUROTON [Concomitant]

REACTIONS (4)
  - BALANCE DISORDER [None]
  - DIZZINESS [None]
  - SENSITIVITY OF TEETH [None]
  - TINNITUS [None]
